FAERS Safety Report 11865371 (Version 2)
Quarter: 2016Q1

REPORT INFORMATION
  Report Type: Spontaneous
  Country: US (occurrence: US)
  Receive Date: 20151223
  Receipt Date: 20160210
  Transmission Date: 20160526
  Serious: No
  Sender: FDA-Public Use
  Company Number: US-GLAXOSMITHKLINE-US2015178458

PATIENT
  Age: 14 Year
  Sex: Male

DRUGS (2)
  1. PROAIR HFA [Concomitant]
     Active Substance: ALBUTEROL SULFATE
  2. FLOVENT [Suspect]
     Active Substance: FLUTICASONE PROPIONATE
     Indication: PRODUCT USED FOR UNKNOWN INDICATION
     Route: 055
     Dates: start: 201512

REACTIONS (4)
  - Skin exfoliation [Unknown]
  - Urticaria [Unknown]
  - Hypersensitivity [Unknown]
  - Chest discomfort [Unknown]

NARRATIVE: CASE EVENT DATE: 20151216
